FAERS Safety Report 13526351 (Version 2)
Quarter: 2017Q3

REPORT INFORMATION
  Report Type: Report from Study
  Country: US (occurrence: US)
  Receive Date: 20170509
  Receipt Date: 20170808
  Transmission Date: 20171127
  Serious: Yes (Death, Hospitalization, Other)
  Sender: FDA-Public Use
  Company Number: US-ROCHE-1900311

PATIENT
  Age: 78 Year
  Sex: Female
  Weight: 63.9 kg

DRUGS (3)
  1. BEVACIZUMAB. [Suspect]
     Active Substance: BEVACIZUMAB
     Indication: MALIGNANT MELANOMA
     Dosage: ON 10/OCT/2016, HE RECEIVED LAST DOSE OF BEVACIZUMAB ?INDUCTION (CYCLE=21 DAYS)?BEVACIZUMAB: 15MG/KG
     Route: 042
     Dates: start: 20160916
  2. IPILIMUMAB [Suspect]
     Active Substance: IPILIMUMAB
     Indication: MALIGNANT MELANOMA
     Dosage: ON 10/OCT/2016, HE RECEIVED LAST DOSE OF IPILIMUMAB.?INDUCTION (CYCLE=21 DAYS)?IPILIMUMAB: 3MG/KG IV
     Route: 042
     Dates: start: 20160916
  3. COUMADIN [Suspect]
     Active Substance: WARFARIN SODIUM
     Indication: PRODUCT USED FOR UNKNOWN INDICATION
     Route: 065

REACTIONS (12)
  - Pleural effusion [Unknown]
  - Hypotension [Recovered/Resolved]
  - International normalised ratio increased [Recovered/Resolved]
  - Neoplasm progression [Fatal]
  - Skin ulcer [Unknown]
  - Fatigue [Unknown]
  - Confusional state [Unknown]
  - Fall [Unknown]
  - Muscular weakness [Unknown]
  - Dehydration [Unknown]
  - Embolism [Recovered/Resolved]
  - Activated partial thromboplastin time prolonged [Unknown]

NARRATIVE: CASE EVENT DATE: 20161017
